FAERS Safety Report 8010563-5 (Version None)
Quarter: 2011Q4

REPORT INFORMATION
  Report Type: 
  Country: None (occurrence: None)
  Receive Date: 20111228
  Receipt Date: 20111213
  Transmission Date: 20120403
  Serious: Yes (Other)
  Sender: FDA-Public Use
  Company Number: PHHY2010NZ62774

PATIENT
  Sex: Female

DRUGS (4)
  1. LITHIUM [Concomitant]
     Indication: SCHIZOAFFECTIVE DISORDER
     Dosage: 1 G, DAILY
     Route: 048
     Dates: end: 20100601
  2. OMEPRAZOLE [Concomitant]
     Indication: DYSPEPSIA
     Dosage: 20 MG, PRN
     Route: 048
     Dates: end: 20100601
  3. CLOZARIL [Suspect]
     Indication: SCHIZOAFFECTIVE DISORDER
     Dosage: 200 MG,NOCTE
     Route: 048
     Dates: start: 20100224, end: 20100601
  4. CITALOPRAM HYDROBROMIDE [Concomitant]
     Indication: SCHIZOAFFECTIVE DISORDER
     Dosage: 40 MG DAILY
     Route: 048
     Dates: end: 20100601

REACTIONS (4)
  - DEEP VEIN THROMBOSIS [None]
  - MATERNAL EXPOSURE DURING PREGNANCY [None]
  - INCORRECT DOSE ADMINISTERED [None]
  - GESTATIONAL DIABETES [None]
